FAERS Safety Report 8495306 (Version 2)
Quarter: 2012Q4

REPORT INFORMATION
  Report Type: 
  Country: US (occurrence: US)
  Receive Date: 20120405
  Receipt Date: 20121029
  Transmission Date: 20130627
  Serious: Yes (Other)
  Sender: FDA-Public Use
  Company Number: US-PFIZER INC-2012082845

PATIENT
  Age: 43 Year
  Sex: Male

DRUGS (1)
  1. CHANTIX [Suspect]
     Indication: SMOKING CESSATION THERAPY
     Dosage: starter pack and continuing pack
     Dates: start: 200704

REACTIONS (10)
  - Suicidal behaviour [Unknown]
  - Convulsion [Recovered/Resolved]
  - Loss of consciousness [Not Recovered/Not Resolved]
  - Depression [Not Recovered/Not Resolved]
  - Anxiety [Not Recovered/Not Resolved]
  - Mood swings [Not Recovered/Not Resolved]
  - Hostility [Not Recovered/Not Resolved]
  - Fatigue [Unknown]
  - Aggression [Recovered/Resolved]
  - Disturbance in attention [Not Recovered/Not Resolved]
